FAERS Safety Report 9285263 (Version 1)
Quarter: 2013Q2

REPORT INFORMATION
  Report Type: Spontaneous
  Country: US (occurrence: US)
  Receive Date: 20130513
  Receipt Date: 20130513
  Transmission Date: 20140414
  Serious: Yes (Hospitalization, Other)
  Sender: FDA-Public Use
  Company Number: US-SUN PHARMACEUTICAL INDUSTRIES LTD-2013SUN00577

PATIENT
  Age: 87 Year
  Sex: Male

DRUGS (3)
  1. OXALIPLATIN [Suspect]
     Indication: SQUAMOUS CELL CARCINOMA
     Route: 058
  2. FOLINIC ACID [Suspect]
     Indication: SQUAMOUS CELL CARCINOMA
     Route: 058
  3. FLUOROURACIL [Suspect]
     Indication: SQUAMOUS CELL CARCINOMA
     Route: 058

REACTIONS (4)
  - Pleural effusion [Recovering/Resolving]
  - Extravasation [Recovering/Resolving]
  - Pneumonitis [Recovered/Resolved]
  - Iatrogenic injury [Recovering/Resolving]
